FAERS Safety Report 7502261-9 (Version None)
Quarter: 2011Q2

REPORT INFORMATION
  Report Type: 
  Country: None (occurrence: None)
  Receive Date: 20110525
  Receipt Date: 20090430
  Transmission Date: 20111010
  Serious: Yes (Hospitalization, Other)
  Sender: FDA-Public Use
  Company Number: US-BAYER-200920244NA

PATIENT
  Age: 72 Year
  Sex: Male
  Weight: 74 kg

DRUGS (17)
  1. ACETYLSALICYLIC ACID SRT [Concomitant]
     Dosage: 81 MG, QD
     Route: 048
  2. ENALAPRIL MALEATE [Concomitant]
     Dosage: 10 MG, QD
     Route: 048
     Dates: start: 20071113
  3. ISOFLURANE [Concomitant]
     Dosage: UNK
     Route: 042
     Dates: start: 20070328, end: 20070328
  4. MIDAZOLAM HCL [Concomitant]
     Dosage: UNK
     Route: 042
     Dates: start: 20070328
  5. FENTANYL [Concomitant]
     Dosage: UNK
     Route: 042
     Dates: start: 20070328
  6. TRASYLOL [Suspect]
     Indication: CORONARY ARTERY BYPASS
     Dosage: 200 ML LOADING DOSE
     Route: 042
     Dates: start: 20070328, end: 20070328
  7. PROTAMINE SULFATE [Concomitant]
     Dosage: UNK
     Route: 042
     Dates: start: 20070328, end: 20070328
  8. METOPROLOL [Concomitant]
     Dosage: 50 MG, QD
     Route: 048
     Dates: end: 20071113
  9. HEPARIN [Concomitant]
     Dosage: UNK
     Route: 042
     Dates: start: 20070328
  10. CEFAZOLIN [Concomitant]
     Dosage: UNK
     Route: 042
     Dates: start: 20070328
  11. TRASYLOL [Suspect]
     Indication: AORTIC VALVE REPLACEMENT
     Dosage: 1 ML, TEST DOSE
     Route: 042
     Dates: start: 20070328, end: 20070328
  12. TRASYLOL [Suspect]
     Dosage: 50ML/HOUR INFUSION
     Route: 042
     Dates: start: 20070328, end: 20070328
  13. ROCURONIUM BROMIDE [Concomitant]
     Dosage: UNK
     Route: 042
     Dates: start: 20070328
  14. CRESTOR [Concomitant]
     Dosage: 20 MG, QD
     Route: 048
     Dates: end: 20071113
  15. PLAVIX [Concomitant]
     Dosage: 75 MG, QD
     Route: 048
  16. NAPROXEN SODIUM [Concomitant]
     Dosage: UNK UNK, PRN
     Route: 048
  17. NITROSTAT [Concomitant]
     Dosage: 0.4MG EVERY 5MIN X3, AS NEED FOR CHEST PAIN
     Route: 060

REACTIONS (6)
  - RENAL FAILURE [None]
  - TRAUMATIC LUNG INJURY [None]
  - RENAL IMPAIRMENT [None]
  - AMNESIA [None]
  - MULTI-ORGAN FAILURE [None]
  - RENAL INJURY [None]
